FAERS Safety Report 16810142 (Version 1)
Quarter: 2019Q3

REPORT INFORMATION
  Report Type: Spontaneous
  Country: NL (occurrence: NL)
  Receive Date: 20190916
  Receipt Date: 20190916
  Transmission Date: 20191005
  Serious: Yes (Other)
  Sender: FDA-Public Use
  Company Number: NL-MYLANLABS-2019M1085436

PATIENT
  Age: 38 Year
  Sex: Female

DRUGS (1)
  1. NORTRIPTYLINE [Suspect]
     Active Substance: NORTRIPTYLINE
     Indication: MIGRAINE WITHOUT AURA
     Dosage: UNK
     Route: 065

REACTIONS (2)
  - Suicidal behaviour [Unknown]
  - Product use in unapproved indication [Unknown]
